FAERS Safety Report 11408643 (Version 1)
Quarter: 2015Q3

REPORT INFORMATION
  Report Type: Spontaneous
  Country: KP (occurrence: KR)
  Receive Date: 20150822
  Receipt Date: 20150822
  Transmission Date: 20151125
  Serious: Yes (Hospitalization)
  Sender: FDA-Public Use
  Company Number: PHHY2015KR098950

PATIENT
  Age: 65 Year
  Sex: Female

DRUGS (1)
  1. TRAMADOL+PARACETAMOL [Suspect]
     Active Substance: ACETAMINOPHEN\TRAMADOL
     Indication: PRODUCT USED FOR UNKNOWN INDICATION
     Route: 065

REACTIONS (2)
  - Myoclonus [Recovered/Resolved]
  - Dyskinesia [Recovered/Resolved]
